FAERS Safety Report 16025335 (Version 1)
Quarter: 2019Q1

REPORT INFORMATION
  Report Type: Spontaneous
  Country: CA (occurrence: CA)
  Receive Date: 20190301
  Receipt Date: 20190301
  Transmission Date: 20190418
  Serious: Yes (Life-Threatening, Hospitalization)
  Sender: FDA-Public Use
  Company Number: CA-HLSUS-2019-CA-000208

PATIENT
  Age: 25 Year
  Sex: Male
  Weight: 88 kg

DRUGS (1)
  1. CLOZAPINE. [Suspect]
     Active Substance: CLOZAPINE
     Indication: PSYCHOTIC DISORDER
     Dosage: 350 MG 1 EVERY 1 DAY
     Route: 048

REACTIONS (1)
  - Neutropenia [Recovered/Resolved]
